FAERS Safety Report 25858996 (Version 1)
Quarter: 2025Q3

REPORT INFORMATION
  Report Type: Spontaneous
  Country: US (occurrence: US)
  Receive Date: 20250929
  Receipt Date: 20250929
  Transmission Date: 20251020
  Serious: No
  Sender: MYLAN
  Company Number: US-MYLANLABS-2025M1079541

PATIENT

DRUGS (1)
  1. XULANE [Suspect]
     Active Substance: ETHINYL ESTRADIOL\NORELGESTROMIN
     Indication: Product used for unknown indication
     Dosage: 150/35 MICROGRAM QD (ONCE A DAY, WEEKLY)

REACTIONS (4)
  - Menstrual disorder [Unknown]
  - Mood swings [Unknown]
  - Product adhesion issue [Unknown]
  - Product quality issue [Unknown]
